FAERS Safety Report 17810784 (Version 1)
Quarter: 2020Q2

REPORT INFORMATION
  Report Type: Spontaneous
  Country: IT (occurrence: IT)
  Receive Date: 20200521
  Receipt Date: 20200521
  Transmission Date: 20200714
  Serious: Yes (Hospitalization)
  Sender: FDA-Public Use
  Company Number: IT-TEVA-2020-IT-1239439

PATIENT
  Age: 30 Year
  Sex: Female

DRUGS (6)
  1. CLONAZEPAM. [Interacting]
     Active Substance: CLONAZEPAM
     Route: 065
  2. RISPERIDONE. [Suspect]
     Active Substance: RISPERIDONE
     Route: 065
  3. SODIUM VALPROATE [Interacting]
     Active Substance: VALPROATE SODIUM
     Route: 065
  4. ESTROGEN [Suspect]
     Active Substance: ESTROGENS
     Indication: MENSTRUATION IRREGULAR
     Dosage: PILL
     Route: 065
  5. PROGESTERONE. [Interacting]
     Active Substance: PROGESTERONE
     Indication: MENSTRUATION IRREGULAR
     Dosage: PILL
     Route: 065
  6. PHENOBARBITAL. [Concomitant]
     Active Substance: PHENOBARBITAL
     Route: 065

REACTIONS (2)
  - Breast hyperplasia [Recovered/Resolved]
  - Drug interaction [Unknown]
